FAERS Safety Report 5535228-0 (Version None)
Quarter: 2007Q4

REPORT INFORMATION
  Report Type: 
  Country: None (occurrence: None)
  Receive Date: 20071206
  Receipt Date: 20071127
  Transmission Date: 20080405
  Serious: Yes (Hospitalization)
  Sender: FDA-Public Use
  Company Number: US-JNJFOC-20071109965

PATIENT
  Age: 35 Year
  Sex: Female
  Weight: 86.18 kg

DRUGS (1)
  1. REMICADE [Suspect]
     Indication: POLYMYOSITIS
     Route: 042

REACTIONS (2)
  - AUTOIMMUNE HEPATITIS [None]
  - PYREXIA [None]
